FAERS Safety Report 11377200 (Version 2)
Quarter: 2015Q3

REPORT INFORMATION
  Report Type: Report from Study
  Country: CA (occurrence: CA)
  Receive Date: 20150813
  Receipt Date: 20150820
  Transmission Date: 20151125
  Serious: Yes (Other)
  Sender: FDA-Public Use
  Company Number: PHHY2011CA11150

PATIENT
  Age: 68 Year
  Sex: Female

DRUGS (6)
  1. ACLASTA [Suspect]
     Active Substance: ZOLEDRONIC ACID
     Dosage: UNK
     Route: 042
     Dates: start: 20110207
  2. ACLASTA [Suspect]
     Active Substance: ZOLEDRONIC ACID
     Dosage: UNK
     Route: 042
     Dates: start: 20120206
  3. ACLASTA [Suspect]
     Active Substance: ZOLEDRONIC ACID
     Dosage: UNK
     Route: 042
     Dates: start: 20140616
  4. ACLASTA [Suspect]
     Active Substance: ZOLEDRONIC ACID
     Indication: OSTEOPOROSIS
     Dosage: 5 MG, UNK
     Route: 042
     Dates: start: 20081203
  5. ACLASTA [Suspect]
     Active Substance: ZOLEDRONIC ACID
     Dosage: UNK
     Route: 042
     Dates: start: 20100208
  6. ACLASTA [Suspect]
     Active Substance: ZOLEDRONIC ACID
     Dosage: UNK
     Route: 042
     Dates: start: 20130225

REACTIONS (4)
  - Arthralgia [Unknown]
  - Pain in extremity [Unknown]
  - Nasopharyngitis [Recovered/Resolved]
  - Dementia Alzheimer^s type [Unknown]

NARRATIVE: CASE EVENT DATE: 201012
